FAERS Safety Report 7490788-8 (Version None)
Quarter: 2011Q2

REPORT INFORMATION
  Report Type: 
  Country: None (occurrence: None)
  Receive Date: 20110519
  Receipt Date: 20110509
  Transmission Date: 20111010
  Serious: Yes (Other)
  Sender: FDA-Public Use
  Company Number: US-BAYER-201034894NA

PATIENT
  Age: 32 Year
  Sex: Female
  Weight: 103 kg

DRUGS (26)
  1. ACETAMINOPHEN AND HYDROCODONE BITARTRATE [Concomitant]
     Indication: PAIN
     Dosage: 325 MG, QID
     Route: 048
     Dates: start: 20070920
  2. MULTI-VITAMINS [Concomitant]
  3. CEPHALEXIN [Concomitant]
     Dosage: 500 MG, QD
     Route: 048
  4. AMOXICILLIN [Concomitant]
     Dosage: 500 MG, TID
     Route: 048
     Dates: start: 20070918, end: 20090325
  5. AMANTADINE HYDROCHLORIDE [Concomitant]
     Dosage: UNK
     Route: 048
     Dates: start: 20080116
  6. NITROFURANT MACRO [Concomitant]
     Dosage: 100 MG, BID
     Route: 048
  7. DICYCLOMINE [Concomitant]
     Dosage: 20 MG, QD
     Route: 048
     Dates: start: 20100324
  8. YAZ [Suspect]
     Indication: CONTRACEPTION
     Dates: start: 20010101, end: 20071215
  9. YASMIN [Suspect]
     Indication: CONTRACEPTION
     Dosage: UNK
     Dates: start: 20040301, end: 20060901
  10. TRIAMCINOLONE [Concomitant]
     Dosage: 1 %, BID
     Route: 061
     Dates: start: 20080131
  11. FLUTICASONE PROPIONATE [Concomitant]
     Dosage: UNK
     Route: 045
     Dates: start: 20080611
  12. METRONIDAZOLE [Concomitant]
     Dosage: 500 MG, BID
     Route: 048
     Dates: start: 20090827
  13. METRONIDAZOLE [Concomitant]
     Dosage: UNK
     Route: 067
     Dates: start: 20090914, end: 20090921
  14. DROSPIRENONE AND ETHINYL ESTRADIOL [Suspect]
     Dosage: UNK
     Dates: start: 20080901, end: 20091101
  15. VENTOLIN HFA [Concomitant]
     Dosage: 90 MCG/2 PUFFS
     Route: 048
     Dates: start: 20090825
  16. YAZ [Suspect]
     Indication: PREMENSTRUAL SYNDROME
  17. YASMIN [Suspect]
     Indication: PREMENSTRUAL SYNDROME
     Dosage: UNK
     Dates: start: 20041201, end: 20080801
  18. IBUPROFEN [Concomitant]
     Indication: PAIN
     Dosage: 200 MG, BID
     Route: 048
  19. AMOXICILLIN [Concomitant]
     Dosage: 500 MG, BID
     Route: 048
     Dates: start: 20110111, end: 20110118
  20. PEG-3350 AND ELECTROLYTES [Concomitant]
     Dosage: UNK
     Dates: start: 20100414
  21. HYDROCORTISONE VALERATE [Concomitant]
     Dosage: UNK
     Route: 061
     Dates: start: 20091130
  22. BISACODYL [Concomitant]
     Dosage: 10 MG, ONCE
     Route: 054
     Dates: start: 20100414
  23. ZYRTEC [Concomitant]
     Route: 048
  24. ALBUTEROL [Concomitant]
     Route: 048
  25. NASONEX [Concomitant]
     Route: 045
  26. MUPIROCIN [Concomitant]
     Dosage: UNK UNK, TID
     Route: 061
     Dates: start: 20100623

REACTIONS (3)
  - CHOLELITHIASIS [None]
  - ABDOMINAL PAIN [None]
  - CHOLECYSTITIS [None]
